FAERS Safety Report 24679266 (Version 1)
Quarter: 2024Q4

REPORT INFORMATION
  Report Type: Spontaneous
  Country: AU (occurrence: AU)
  Receive Date: 20241129
  Receipt Date: 20241129
  Transmission Date: 20250115
  Serious: Yes (Other)
  Sender: RANBAXY
  Company Number: AU-SUN PHARMACEUTICAL INDUSTRIES LTD-2024RR-481750

PATIENT
  Age: 26 Year
  Sex: Male

DRUGS (1)
  1. AMPHOTERICIN B [Suspect]
     Active Substance: AMPHOTERICIN B
     Indication: Bronchopulmonary aspergillosis
     Dosage: 300 MILLIGRAM, DAILY
     Route: 065

REACTIONS (5)
  - Hyponatraemia [Unknown]
  - Ascites [Unknown]
  - Dyspnoea [Unknown]
  - Renal impairment [Unknown]
  - Pleural effusion [Unknown]
